FAERS Safety Report 9808697 (Version 1)
Quarter: 2014Q1

REPORT INFORMATION
  Report Type: Spontaneous
  Country: US (occurrence: US)
  Receive Date: 20140110
  Receipt Date: 20140110
  Transmission Date: 20141002
  Serious: No
  Sender: FDA-Public Use
  Company Number: US-TEVA-455369USA

PATIENT
  Sex: Female

DRUGS (2)
  1. PARAGARD 380A [Suspect]
     Indication: CONTRACEPTION
     Route: 015
     Dates: start: 2001, end: 20131231
  2. PARAGARD 380A [Suspect]
     Route: 015
     Dates: start: 20131231, end: 20131231

REACTIONS (2)
  - Metrorrhagia [Unknown]
  - Expired device used [Recovered/Resolved]
